FAERS Safety Report 26099686 (Version 1)
Quarter: 2025Q4

REPORT INFORMATION
  Report Type: Spontaneous
  Country: JP (occurrence: JP)
  Receive Date: 20251128
  Receipt Date: 20251128
  Transmission Date: 20260118
  Serious: Yes (Other)
  Sender: TAKEDA
  Company Number: JP-TAKEDA-2025TJP011972

PATIENT
  Age: 1 Year
  Sex: Male

DRUGS (1)
  1. VPRIV [Suspect]
     Active Substance: VELAGLUCERASE ALFA
     Indication: Gaucher^s disease type II
     Dosage: UNK

REACTIONS (3)
  - Paroxysmal sympathetic hyperactivity [Unknown]
  - Device related infection [Unknown]
  - Staphylococcal infection [Unknown]
